FAERS Safety Report 8426779-X (Version None)
Quarter: 2012Q2

REPORT INFORMATION
  Report Type: 
  Country: None (occurrence: None)
  Receive Date: 20120611
  Receipt Date: 20120607
  Transmission Date: 20120825
  Serious: Yes (Death, Other)
  Sender: FDA-Public Use
  Company Number: PHHY2012AU048889

PATIENT
  Age: 27 Year
  Sex: Male

DRUGS (4)
  1. METHADONE HCL [Suspect]
  2. OXAZEPAM [Suspect]
  3. MORPHINE [Suspect]
  4. NORDIAZEPAM [Suspect]

REACTIONS (3)
  - PULMONARY OEDEMA [None]
  - OVERDOSE [None]
  - PULMONARY CONGESTION [None]
